FAERS Safety Report 9717532 (Version 1)
Quarter: 2013Q4

REPORT INFORMATION
  Report Type: Spontaneous
  Country: US (occurrence: US)
  Receive Date: 20131127
  Receipt Date: 20131127
  Transmission Date: 20140711
  Serious: No
  Sender: FDA-Public Use
  Company Number: US-GILEAD-2009-0020570

PATIENT
  Age: 88 Year
  Sex: Female
  Weight: 79.38 kg

DRUGS (12)
  1. LETAIRIS [Suspect]
     Indication: PULMONARY HYPERTENSION
     Route: 048
     Dates: start: 20080229
  2. REVATIO [Concomitant]
     Indication: PULMONARY HYPERTENSION
  3. COUMADIN [Concomitant]
  4. LASIX [Concomitant]
  5. LIPITOR [Concomitant]
  6. NEURONTIN [Concomitant]
  7. CITALOPRAM [Concomitant]
  8. NASONEX [Concomitant]
  9. CENTRUM [Concomitant]
  10. TYLENOL [Concomitant]
  11. PRILOSEC [Concomitant]
  12. URISED [Concomitant]

REACTIONS (2)
  - Heart rate increased [Unknown]
  - Malaise [Unknown]
